FAERS Safety Report 16809063 (Version 1)
Quarter: 2019Q3

REPORT INFORMATION
  Report Type: Spontaneous
  Country: GB (occurrence: GB)
  Receive Date: 20190916
  Receipt Date: 20190916
  Transmission Date: 20191005
  Serious: Yes (Life-Threatening, Hospitalization, Other)
  Sender: FDA-Public Use
  Company Number: GB-SCIEGEN PHARMACEUTICALS INC-2019SCILIT00255

PATIENT

DRUGS (12)
  1. ATORVASTATIN [Suspect]
     Active Substance: ATORVASTATIN
  2. BISOPROLOL [Suspect]
     Active Substance: BISOPROLOL
  3. ATROPINE. [Interacting]
     Active Substance: ATROPINE
  4. POTASSIUM [Interacting]
     Active Substance: POTASSIUM
  5. DILTIAZEM. [Suspect]
     Active Substance: DILTIAZEM
  6. RAMIPRIL. [Suspect]
     Active Substance: RAMIPRIL
  7. ADRENALINE [Interacting]
     Active Substance: EPINEPHRINE
  8. APIXABAN [Suspect]
     Active Substance: APIXABAN
  9. GLUCAGON. [Interacting]
     Active Substance: GLUCAGON
  10. DEXTROSE. [Interacting]
     Active Substance: DEXTROSE
  11. INSULIN [Interacting]
     Active Substance: INSULIN NOS
  12. DOBUTAMINE [Interacting]
     Active Substance: DOBUTAMINE HYDROCHLORIDE

REACTIONS (6)
  - Intentional overdose [Unknown]
  - Oliguria [Recovering/Resolving]
  - Bradycardia [Recovering/Resolving]
  - Loss of consciousness [Unknown]
  - Hypotension [Recovering/Resolving]
  - Atrial fibrillation [Recovering/Resolving]
